FAERS Safety Report 10287047 (Version 2)
Quarter: 2014Q3

REPORT INFORMATION
  Report Type: Report from Study
  Country: BR (occurrence: BR)
  Receive Date: 20140709
  Receipt Date: 20140709
  Transmission Date: 20150326
  Serious: Yes (Other)
  Sender: FDA-Public Use
  Company Number: PHHY2014BR043626

PATIENT
  Age: 39 Year
  Sex: Female
  Weight: 55 kg

DRUGS (3)
  1. INSULIN NOVOLIN [Concomitant]
     Indication: TYPE 1 DIABETES MELLITUS
  2. INSULIN [Concomitant]
     Active Substance: INSULIN NOS
     Indication: TYPE 1 DIABETES MELLITUS
  3. GILENYA [Suspect]
     Active Substance: FINGOLIMOD HYDROCHLORIDE
     Indication: MULTIPLE SCLEROSIS
     Dosage: 1 DF, QD
     Route: 048
     Dates: start: 20140302

REACTIONS (7)
  - Premenstrual syndrome [Unknown]
  - Fatigue [Unknown]
  - Hyperhidrosis [Not Recovered/Not Resolved]
  - Hyperglycaemia [Not Recovered/Not Resolved]
  - Nausea [Recovering/Resolving]
  - Feeling hot [Recovering/Resolving]
  - Burning sensation [Not Recovered/Not Resolved]

NARRATIVE: CASE EVENT DATE: 20140302
